FAERS Safety Report 8167074-6 (Version None)
Quarter: 2012Q1

REPORT INFORMATION
  Report Type: 
  Country: None (occurrence: None)
  Receive Date: 20120227
  Receipt Date: 20120215
  Transmission Date: 20120608
  Serious: Yes (Other)
  Sender: FDA-Public Use
  Company Number: GB-JNJFOC-20120209032

PATIENT
  Sex: Female

DRUGS (1)
  1. REMICADE [Suspect]
     Indication: PSORIASIS
     Route: 042
     Dates: start: 20110101

REACTIONS (4)
  - PHARYNGITIS [None]
  - GUTTATE PSORIASIS [None]
  - INTERSTITIAL LUNG DISEASE [None]
  - ALVEOLITIS [None]
